FAERS Safety Report 11642633 (Version 1)
Quarter: 2015Q4

REPORT INFORMATION
  Report Type: Spontaneous
  Country: US (occurrence: US)
  Receive Date: 20151020
  Receipt Date: 20151020
  Transmission Date: 20160304
  Serious: No
  Sender: FDA-Public Use
  Company Number: US-AMGEN-USASP2015107361

PATIENT
  Age: 61 Year
  Sex: Male
  Weight: 125.17 kg

DRUGS (1)
  1. ENBREL [Suspect]
     Active Substance: ETANERCEPT
     Indication: PSORIATIC ARTHROPATHY
     Dosage: 50 MG, ONCE EVERY WEEK
     Route: 058
     Dates: start: 200512, end: 201508

REACTIONS (4)
  - Foot deformity [Unknown]
  - Skin ulcer [Unknown]
  - Localised infection [Unknown]
  - Hyperkeratosis [Unknown]

NARRATIVE: CASE EVENT DATE: 2015
